FAERS Safety Report 22646585 (Version 1)
Quarter: 2023Q2

REPORT INFORMATION
  Report Type: Spontaneous
  Country: US (occurrence: None)
  Receive Date: 20230626
  Receipt Date: 20230626
  Transmission Date: 20230721
  Serious: No
  Sender: FDA-Public Use
  Company Number: None

PATIENT

DRUGS (2)
  1. GLUCAGON [Suspect]
     Active Substance: GLUCAGON
  2. GLUCAGON [Suspect]
     Active Substance: GLUCAGON

REACTIONS (5)
  - Product availability issue [None]
  - Product design confusion [None]
  - Device difficult to use [None]
  - Needle issue [None]
  - Device connection issue [None]
